FAERS Safety Report 10818406 (Version 3)
Quarter: 2015Q2

REPORT INFORMATION
  Report Type: Spontaneous
  Country: US (occurrence: US)
  Receive Date: 20150218
  Receipt Date: 20150528
  Transmission Date: 20150821
  Serious: Yes (Hospitalization, Other)
  Sender: FDA-Public Use
  Company Number: US-BAYER-2015-024615

PATIENT
  Age: 38 Year
  Sex: Female
  Weight: 61.22 kg

DRUGS (7)
  1. OMEPRAZOLE. [Concomitant]
     Active Substance: OMEPRAZOLE
  2. PROBIOTICA [Concomitant]
     Active Substance: PROBIOTICS NOS
  3. GAS-X [Concomitant]
     Active Substance: DIMETHICONE
  4. AMITIZA [Concomitant]
     Active Substance: LUBIPROSTONE
  5. MIRENA [Suspect]
     Active Substance: LEVONORGESTREL
     Indication: CONTRACEPTION
     Dosage: 20 MCG/24HR, CONT
     Route: 015
     Dates: start: 20120913, end: 20130503
  6. LORAZEPAM. [Concomitant]
     Active Substance: LORAZEPAM
  7. CIPRO [Concomitant]
     Active Substance: CIPROFLOXACIN HYDROCHLORIDE

REACTIONS (13)
  - Injury [None]
  - Anxiety [None]
  - Pelvic pain [None]
  - Medical device discomfort [None]
  - Emotional distress [None]
  - Genital haemorrhage [None]
  - Abdominal pain [None]
  - Fear [None]
  - Device issue [None]
  - Uterine perforation [None]
  - Internal injury [None]
  - Depression [None]
  - Depressed mood [None]

NARRATIVE: CASE EVENT DATE: 201209
